FAERS Safety Report 9284285 (Version 1)
Quarter: 2013Q2

REPORT INFORMATION
  Report Type: Spontaneous
  Country: US (occurrence: US)
  Receive Date: 20130510
  Receipt Date: 20130510
  Transmission Date: 20140414
  Serious: Yes (Other)
  Sender: FDA-Public Use
  Company Number: US-JNJFOC-20130502103

PATIENT
  Age: 22 Year
  Sex: Male
  Weight: 77.11 kg

DRUGS (3)
  1. VISINE-A EYE ALLERGY RELIEF [Suspect]
     Route: 061
  2. VISINE-A EYE ALLERGY RELIEF [Suspect]
     Indication: EYE IRRITATION
     Dosage: 1-2 DROPS PER EYE
     Route: 061
     Dates: start: 201304, end: 20130501
  3. LORATADINE [Concomitant]
     Indication: SEASONAL ALLERGY
     Dosage: TAKING BEFORE VISINE
     Route: 065

REACTIONS (3)
  - Eye discharge [Not Recovered/Not Resolved]
  - Eye disorder [Not Recovered/Not Resolved]
  - Abnormal sensation in eye [Not Recovered/Not Resolved]
